FAERS Safety Report 19377643 (Version 2)
Quarter: 2021Q3

REPORT INFORMATION
  Report Type: Spontaneous
  Country: JP (occurrence: JP)
  Receive Date: 20210604
  Receipt Date: 20210709
  Transmission Date: 20211014
  Serious: No
  Sender: FDA-Public Use
  Company Number: JP-PFIZER INC-2021509924

PATIENT
  Age: 12 Year

DRUGS (1)
  1. GENOTROPIN [Suspect]
     Active Substance: SOMATROPIN
     Route: 058

REACTIONS (5)
  - Wrong technique in device usage process [Unknown]
  - Device mechanical issue [Unknown]
  - Needle issue [Unknown]
  - Device issue [Unknown]
  - Device breakage [Unknown]
